FAERS Safety Report 8981887 (Version 1)
Quarter: 2012Q4

REPORT INFORMATION
  Report Type: 
  Country: IT (occurrence: IT)
  Receive Date: 20121223
  Receipt Date: 20121223
  Transmission Date: 20130627
  Serious: Yes (Other)
  Sender: FDA-Public Use
  Company Number: PHHY2012IT117441

PATIENT
  Age: 42 Year
  Sex: Male

DRUGS (1)
  1. TEGRETOL [Suspect]
     Indication: TRIGEMINAL NEURALGIA
     Dosage: 6 DF, daily
     Route: 048
     Dates: start: 20120607, end: 20120608

REACTIONS (4)
  - Accidental overdose [Unknown]
  - Fall [Unknown]
  - Rib fracture [Unknown]
  - Dizziness [Unknown]
